FAERS Safety Report 9788431 (Version 2)
Quarter: 2014Q1

REPORT INFORMATION
  Report Type: Spontaneous
  Country: CL (occurrence: CL)
  Receive Date: 20131230
  Receipt Date: 20140131
  Transmission Date: 20141002
  Serious: Yes (Other)
  Sender: FDA-Public Use
  Company Number: CL-PFIZER INC-2013370421

PATIENT
  Age: 79 Year
  Sex: Female

DRUGS (3)
  1. XALATAN [Suspect]
     Indication: GLAUCOMA
     Dosage: 1 DF, 1X/DAY
     Dates: start: 2001
  2. ENALAPRIL [Concomitant]
     Dosage: UNK
  3. HYDROCHLOROTHIAZIDE [Concomitant]
     Dosage: UNK

REACTIONS (5)
  - Blindness unilateral [Unknown]
  - Retinal disorder [Unknown]
  - Eye haemorrhage [Unknown]
  - Eye disorder [Unknown]
  - Osteoarthritis [Not Recovered/Not Resolved]
